FAERS Safety Report 10305791 (Version 1)
Quarter: 2014Q3

REPORT INFORMATION
  Report Type: Spontaneous
  Country: US (occurrence: None)
  Receive Date: 20140711
  Receipt Date: 20140711
  Transmission Date: 20150326
  Serious: Yes (Other)
  Sender: FDA-Public Use
  Company Number: None

PATIENT
  Age: 58 Year
  Sex: Female
  Weight: 61.24 kg

DRUGS (2)
  1. BOTOX [Suspect]
     Active Substance: ONABOTULINUMTOXINA
     Indication: SKIN COSMETIC PROCEDURE
     Dosage: 50 UNITS, ONCE, INTO THE MUSCLES
     Dates: start: 20140702, end: 20140702
  2. BOTOX [Suspect]
     Active Substance: ONABOTULINUMTOXINA
     Dosage: 50 UNITS, ONCE, INTO THE MUSCLES
     Dates: start: 20140702, end: 20140702

REACTIONS (9)
  - VIIth nerve paralysis [None]
  - Eye swelling [None]
  - Nausea [None]
  - Insomnia [None]
  - Dry eye [None]
  - Fatigue [None]
  - Headache [None]
  - Malaise [None]
  - Dizziness [None]

NARRATIVE: CASE EVENT DATE: 20140702
